FAERS Safety Report 14861456 (Version 2)
Quarter: 2018Q2

REPORT INFORMATION
  Report Type: Spontaneous
  Country: CH (occurrence: CH)
  Receive Date: 20180508
  Receipt Date: 20180515
  Transmission Date: 20180711
  Serious: Yes (Death, Hospitalization)
  Sender: FDA-Public Use
  Company Number: PHHY2018CH000659

PATIENT
  Sex: Female

DRUGS (3)
  1. TAFINLAR [Suspect]
     Active Substance: DABRAFENIB MESYLATE
     Dosage: 300 MG, QD
     Route: 065
  2. TAFINLAR [Suspect]
     Active Substance: DABRAFENIB MESYLATE
     Indication: MALIGNANT MELANOMA
     Dosage: 75 MG, BID
     Route: 065
     Dates: start: 20140613
  3. TRAMETINIB [Suspect]
     Active Substance: TRAMETINIB
     Indication: MALIGNANT MELANOMA
     Dosage: 2 MG, QD
     Route: 065
     Dates: start: 20140624

REACTIONS (16)
  - Disorientation [Fatal]
  - Aphasia [Fatal]
  - Erysipelas [Recovered/Resolved]
  - General physical health deterioration [Fatal]
  - Apnoeic attack [Fatal]
  - Vomiting [Unknown]
  - Hyporesponsive to stimuli [Fatal]
  - Dysphagia [Unknown]
  - Nausea [Unknown]
  - Somnolence [Fatal]
  - Malignant neoplasm progression [Fatal]
  - Brain oedema [Recovered/Resolved]
  - Metastases to central nervous system [Fatal]
  - Malignant melanoma [Fatal]
  - Brain oedema [Fatal]
  - Asthenia [Unknown]

NARRATIVE: CASE EVENT DATE: 20141005
